FAERS Safety Report 9381777 (Version 1)
Quarter: 2013Q3

REPORT INFORMATION
  Report Type: Spontaneous
  Country: DE (occurrence: DE)
  Receive Date: 20130703
  Receipt Date: 20130703
  Transmission Date: 20140515
  Serious: Yes (Congenital Anomaly)
  Sender: FDA-Public Use
  Company Number: DE-TEVA-414943GER

PATIENT
  Age: 0 Year
  Sex: Male

DRUGS (2)
  1. MIRTAZAPIN [Suspect]
     Route: 064
  2. TAVOR [Concomitant]
     Route: 064

REACTIONS (1)
  - Pyloric stenosis [Recovered/Resolved with Sequelae]
